FAERS Safety Report 5885364-4 (Version None)
Quarter: 2008Q3

REPORT INFORMATION
  Report Type: 
  Country: None (occurrence: None)
  Receive Date: 20080916
  Receipt Date: 20080904
  Transmission Date: 20090109
  Serious: Yes (Other)
  Sender: FDA-Public Use
  Company Number: SE-PFIZER INC-2008075450

PATIENT
  Age: 25 Year
  Sex: Female

DRUGS (6)
  1. LYRICA [Suspect]
     Indication: NEURALGIA
     Dates: start: 20070101
  2. AMITRIPTYLINE HCL [Concomitant]
  3. VALPROATE SODIUM [Concomitant]
  4. ZOLPIDEM TARTRATE [Concomitant]
  5. ACETAMINOPHEN W/ CODEINE [Concomitant]
  6. NEXIUM [Concomitant]

REACTIONS (7)
  - ATRIOVENTRICULAR BLOCK FIRST DEGREE [None]
  - FATIGUE [None]
  - HEMIPARESIS [None]
  - PARAESTHESIA [None]
  - TACHYCARDIA [None]
  - THIRST [None]
  - TIC [None]
